FAERS Safety Report 15698397 (Version 5)
Quarter: 2019Q2

REPORT INFORMATION
  Report Type: Spontaneous
  Country: US (occurrence: US)
  Receive Date: 20181207
  Receipt Date: 20190604
  Transmission Date: 20190711
  Serious: No
  Sender: FDA-Public Use
  Company Number: US-PFIZER INC-2018498394

PATIENT
  Age: 65 Year
  Sex: Female
  Weight: 72.56 kg

DRUGS (3)
  1. TAXOTERE [Suspect]
     Active Substance: DOCETAXEL
     Indication: BREAST CANCER FEMALE
     Dosage: 75 MG, CYCLIC (EVERY 3 WEEKS, 3 CYCLES)
     Dates: start: 20141120, end: 20150106
  2. NEOSAR [Concomitant]
     Active Substance: CYCLOPHOSPHAMIDE
     Indication: CHEMOTHERAPY
     Dosage: UNK
  3. DOCETAXEL. [Suspect]
     Active Substance: DOCETAXEL
     Indication: BREAST CANCER FEMALE
     Dosage: 75 MG, CYCLIC (EVERY 3 WEEKS, 3 CYCLES)
     Dates: start: 20141120, end: 20150106

REACTIONS (5)
  - Hair texture abnormal [Recovered/Resolved]
  - Hair colour changes [Recovered/Resolved]
  - Alopecia [Recovered/Resolved]
  - Madarosis [Recovered/Resolved]
  - Hair disorder [Recovered/Resolved]

NARRATIVE: CASE EVENT DATE: 201507
